FAERS Safety Report 6253191-4 (Version None)
Quarter: 2009Q3

REPORT INFORMATION
  Report Type: 
  Country: None (occurrence: None)
  Receive Date: 20090701
  Receipt Date: 20090624
  Transmission Date: 20100115
  Serious: Yes (Hospitalization)
  Sender: FDA-Public Use
  Company Number: FR-MERCK-0906USA05473

PATIENT
  Age: 62 Year
  Sex: Male

DRUGS (7)
  1. ZOCOR [Suspect]
     Indication: HYPERCHOLESTEROLAEMIA
     Route: 048
     Dates: end: 20090528
  2. COLCHIMAX [Suspect]
     Indication: HYPERURICAEMIA
     Route: 048
     Dates: start: 20090507, end: 20090528
  3. NEORAL [Suspect]
     Indication: RENAL TRANSPLANT
     Route: 048
     Dates: start: 20070416
  4. LASIX [Concomitant]
     Route: 065
  5. ADANCOR [Concomitant]
     Route: 048
     Dates: start: 20090511
  6. IMODIUM [Concomitant]
     Route: 048
  7. IMUREL [Concomitant]
     Route: 065

REACTIONS (2)
  - DRUG INTERACTION [None]
  - RHABDOMYOLYSIS [None]
